FAERS Safety Report 6321841-X (Version None)
Quarter: 2009Q3

REPORT INFORMATION
  Report Type: 
  Country: None (occurrence: None)
  Receive Date: 20090821
  Receipt Date: 20090821
  Transmission Date: 20100115
  Serious: Yes (Other)
  Sender: FDA-Public Use
  Company Number: None

PATIENT
  Age: 53 Year
  Sex: Female
  Weight: 102.0593 kg

DRUGS (2)
  1. DIVALPROEX EXTENDED-RELEASE [Suspect]
     Indication: COMPLEX PARTIAL SEIZURES
     Dosage: 250MG 2X A DAY ORAL
     Route: 048
     Dates: start: 20090522
  2. DIVALPROEX EXTENDED-RELEASE [Suspect]
     Dosage: 500MG 2X A DAY ORAL
     Route: 048

REACTIONS (2)
  - CONVULSION [None]
  - PRODUCT SUBSTITUTION ISSUE [None]
